FAERS Safety Report 23528495 (Version 6)
Quarter: 2025Q2

REPORT INFORMATION
  Report Type: Report from Study
  Country: CA (occurrence: CA)
  Receive Date: 20240215
  Receipt Date: 20250613
  Transmission Date: 20250717
  Serious: Yes (Hospitalization, Other)
  Sender: TAKEDA
  Company Number: CA-TAKEDA-2022TUS076739

PATIENT
  Age: 62 Year
  Sex: Male

DRUGS (8)
  1. VEDOLIZUMAB [Suspect]
     Active Substance: VEDOLIZUMAB
     Indication: Crohn^s disease
  2. VEDOLIZUMAB [Suspect]
     Active Substance: VEDOLIZUMAB
  3. VEDOLIZUMAB [Suspect]
     Active Substance: VEDOLIZUMAB
  4. VEDOLIZUMAB [Suspect]
     Active Substance: VEDOLIZUMAB
  5. VEDOLIZUMAB [Suspect]
     Active Substance: VEDOLIZUMAB
  6. VEDOLIZUMAB [Suspect]
     Active Substance: VEDOLIZUMAB
  7. VEDOLIZUMAB [Suspect]
     Active Substance: VEDOLIZUMAB
  8. PENTASA [Concomitant]
     Active Substance: MESALAMINE

REACTIONS (23)
  - Blood disorder [Unknown]
  - Nephrolithiasis [Recovered/Resolved]
  - Drug effect less than expected [Unknown]
  - Sinus pain [Unknown]
  - Productive cough [Unknown]
  - Gastrooesophageal reflux disease [Unknown]
  - Eye discharge [Unknown]
  - Swelling [Unknown]
  - Arthritis [Unknown]
  - Hepatic steatosis [Unknown]
  - Illness [Unknown]
  - Infection [Unknown]
  - Malaise [Unknown]
  - Ear infection [Unknown]
  - Abdominal pain [Unknown]
  - Dizziness [Unknown]
  - Vision blurred [Unknown]
  - Nasal congestion [Unknown]
  - Headache [Not Recovered/Not Resolved]
  - Nasopharyngitis [Recovering/Resolving]
  - Arthralgia [Unknown]
  - Sinusitis [Not Recovered/Not Resolved]
  - Oropharyngeal pain [Unknown]

NARRATIVE: CASE EVENT DATE: 20220920
